FAERS Safety Report 8237267-8 (Version None)
Quarter: 2012Q1

REPORT INFORMATION
  Report Type: 
  Country: None (occurrence: None)
  Receive Date: 20120327
  Receipt Date: 20120327
  Transmission Date: 20120608
  Serious: No
  Sender: FDA-Public Use
  Company Number: None

PATIENT
  Age: 54 Year
  Sex: Female
  Weight: 74.842 kg

DRUGS (2)
  1. PRISTIQ [Suspect]
     Indication: WEIGHT CONTROL
     Dosage: 50.0 MG
     Route: 048
     Dates: start: 20120121, end: 20120308
  2. PRISTIQ [Suspect]

REACTIONS (5)
  - HOSTILITY [None]
  - DRUG INEFFECTIVE [None]
  - AGGRESSION [None]
  - ANGER [None]
  - FEELING ABNORMAL [None]
